FAERS Safety Report 14300481 (Version 1)
Quarter: 2017Q4

REPORT INFORMATION
  Report Type: Spontaneous
  Country: US (occurrence: US)
  Receive Date: 20171218
  Receipt Date: 20171218
  Transmission Date: 20180321
  Serious: Yes (Life-Threatening)
  Sender: FDA-Public Use
  Company Number: None

PATIENT
  Age: 72 Year
  Sex: Female

DRUGS (1)
  1. VOTRIENT [Suspect]
     Active Substance: PAZOPANIB HYDROCHLORIDE
     Indication: RENAL CELL CARCINOMA
     Route: 048
     Dates: start: 20171205, end: 20171218

REACTIONS (9)
  - Rectal haemorrhage [None]
  - Urinary retention [None]
  - Fatigue [None]
  - Dyspnoea [None]
  - Vomiting [None]
  - Contusion [None]
  - Nausea [None]
  - Feeding disorder [None]
  - Dyschezia [None]

NARRATIVE: CASE EVENT DATE: 20171218
